FAERS Safety Report 24113089 (Version 1)
Quarter: 2024Q3

REPORT INFORMATION
  Report Type: Spontaneous
  Country: CN (occurrence: CN)
  Receive Date: 20240719
  Receipt Date: 20240719
  Transmission Date: 20241017
  Serious: Yes (Other)
  Sender: ROCHE
  Company Number: CN-BoehringerIngelheim-2024-BI-039476

PATIENT
  Age: 74 Year
  Sex: Female
  Weight: 81.0 kg

DRUGS (2)
  1. ACTIVASE [Suspect]
     Active Substance: ALTEPLASE
     Indication: Cerebral infarction
     Dosage: 7 MILLIGRAM AND WATER FOR INJECTION 7 MILLILITER WAS INTRAVENOUSLY INJECTED FOR 1 MINUTE
     Route: 042
     Dates: start: 20240501, end: 20240501
  2. ACTIVASE [Suspect]
     Active Substance: ALTEPLASE
     Dosage: THE REMAINING ALTEPLASE FOR INJECTION 63 MILLIGRAM AND WATER FOR INJECTION 63 MILLILITER WAS PUMPED
     Route: 042
     Dates: start: 20240501, end: 20240501

REACTIONS (5)
  - Subarachnoid haemorrhage [Recovering/Resolving]
  - Back pain [Recovering/Resolving]
  - Headache [Recovering/Resolving]
  - Nausea [Recovering/Resolving]
  - Vomiting [Recovering/Resolving]

NARRATIVE: CASE EVENT DATE: 20240501
